FAERS Safety Report 19553954 (Version 3)
Quarter: 2021Q3

REPORT INFORMATION
  Report Type: Report from Study
  Country: CN (occurrence: CN)
  Receive Date: 20210715
  Receipt Date: 20210806
  Transmission Date: 20211014
  Serious: Yes (Hospitalization)
  Sender: FDA-Public Use
  Company Number: CN-GLAXOSMITHKLINE-CN2021GSK151691

PATIENT
  Age: 68 Year
  Sex: Female
  Weight: 46 kg

DRUGS (14)
  1. ACARBOSE TABLETS [Concomitant]
     Active Substance: ACARBOSE
     Indication: DIABETES MELLITUS
     Dosage: 100 MG, QD
     Route: 048
     Dates: start: 2012
  2. IBUPROFEN SUSTAINED?RELEASE CAPSULES [Concomitant]
     Indication: PROPHYLAXIS
     Dosage: 0.3 G, QD
     Route: 048
     Dates: start: 20210621
  3. RABEPRAZOLE SODIUM. [Concomitant]
     Active Substance: RABEPRAZOLE SODIUM
     Indication: PROPHYLAXIS
     Dosage: 20 MG, QD
     Route: 042
     Dates: start: 20210621
  4. OXYCODONE HYDROCHLORIDE. [Concomitant]
     Active Substance: OXYCODONE HYDROCHLORIDE
     Indication: ABDOMINAL PAIN
     Dosage: 30 MG, BID
     Route: 048
     Dates: start: 20210507
  5. NIRAPARIB [Suspect]
     Active Substance: NIRAPARIB
     Indication: GASTRIC CANCER
     Dosage: 200 MG, QD
     Route: 048
     Dates: start: 20210621, end: 20210705
  6. ACARBOSE. [Concomitant]
     Active Substance: ACARBOSE
     Indication: DIABETES MELLITUS
     Dosage: 100 MG, QD
     Route: 048
     Dates: start: 2012
  7. LACTULOSE ORAL SOLUTION [Concomitant]
     Active Substance: LACTULOSE
     Indication: CONSTIPATION
     Dosage: 15 ML, PRN
     Route: 048
     Dates: start: 20210528
  8. LACTULOSE. [Concomitant]
     Active Substance: LACTULOSE
     Indication: CONSTIPATION
     Dosage: 15 ML AS NEEDED
     Route: 048
     Dates: start: 20210528
  9. DIPHENHYDRAMINE. [Concomitant]
     Active Substance: DIPHENHYDRAMINE
     Indication: PROPHYLAXIS
     Dosage: 40 MG, QD
     Route: 030
     Dates: start: 20210621
  10. TEBOTELIMAB. [Suspect]
     Active Substance: TEBOTELIMAB
     Indication: GASTRIC CANCER
     Dosage: 600 MG, Z?Q2W
     Route: 042
     Dates: start: 20210621, end: 20210705
  11. MEGESTROL ACETATE. [Concomitant]
     Active Substance: MEGESTROL ACETATE
     Indication: DECREASED APPETITE
     Dosage: 160 MG, QD
     Route: 048
     Dates: start: 20210611, end: 20210620
  12. GLIMEPIRIDE. [Concomitant]
     Active Substance: GLIMEPIRIDE
     Indication: DIABETES MELLITUS
     Dosage: 2 MG, QD
     Route: 048
     Dates: start: 2012
  13. GLIMEPIRIDE TABLETS [Concomitant]
     Active Substance: GLIMEPIRIDE
     Indication: DIABETES MELLITUS
     Dosage: 2 MG, QD
     Route: 048
     Dates: start: 2012
  14. MEGESTROL ACETATE DISPERSIBLE TABLETS [Concomitant]
     Indication: ABDOMINAL PAIN
     Dosage: 160 MG, QD
     Route: 048
     Dates: start: 20210611, end: 20210620

REACTIONS (2)
  - Hypothyroidism [Not Recovered/Not Resolved]
  - Pneumonia [Not Recovered/Not Resolved]

NARRATIVE: CASE EVENT DATE: 20210621
